FAERS Safety Report 14223366 (Version 1)
Quarter: 2017Q4

REPORT INFORMATION
  Report Type: Report from Study
  Country: CN (occurrence: CN)
  Receive Date: 20171124
  Receipt Date: 20171124
  Transmission Date: 20180321
  Serious: Yes (Death)
  Sender: FDA-Public Use
  Company Number: BAXTER-2017BAX039358

PATIENT
  Age: 37 Year
  Sex: Female

DRUGS (1)
  1. PERITONEAL DIALYSIS SOLUTION (LACTATE- G2.5%) [Suspect]
     Active Substance: CALCIUM CHLORIDE\DEXTROSE\MAGNESIUM CHLORIDE\SODIUM CHLORIDE\SODIUM LACTATE
     Indication: END STAGE RENAL DISEASE
     Dosage: 4 BAGS
     Dates: start: 20140702

REACTIONS (1)
  - Death [None]

NARRATIVE: CASE EVENT DATE: 20170830
